FAERS Safety Report 24802403 (Version 1)
Quarter: 2025Q1

REPORT INFORMATION
  Report Type: Report from Study
  Country: CA (occurrence: CA)
  Receive Date: 20250103
  Receipt Date: 20250103
  Transmission Date: 20250409
  Serious: Yes (Other)
  Sender: TAKEDA
  Company Number: CA-TAKEDA-2019TUS016275

PATIENT
  Age: 58 Year
  Sex: Male

DRUGS (18)
  1. VEDOLIZUMAB [Suspect]
     Active Substance: VEDOLIZUMAB
     Indication: Colitis ulcerative
  2. VEDOLIZUMAB [Suspect]
     Active Substance: VEDOLIZUMAB
  3. VEDOLIZUMAB [Suspect]
     Active Substance: VEDOLIZUMAB
  4. Methylprednisolone bijon [Concomitant]
     Indication: Premedication
  5. TYLENOL [Concomitant]
     Active Substance: ACETAMINOPHEN
     Indication: Premedication
  6. ASACOL [Concomitant]
     Active Substance: MESALAMINE
  7. APIXABAN [Concomitant]
     Active Substance: APIXABAN
     Dosage: 5 MILLIGRAM, BID
     Dates: start: 20241104
  8. CANDESARTAN [Concomitant]
     Active Substance: CANDESARTAN
  9. RABEPRAZOLE [Concomitant]
     Active Substance: RABEPRAZOLE
  10. ATORVASTATIN [Concomitant]
     Active Substance: ATORVASTATIN
  11. JARDIANCE [Concomitant]
     Active Substance: EMPAGLIFLOZIN
  12. IRON [Concomitant]
     Active Substance: IRON
  13. MAGNESIUM [Concomitant]
     Active Substance: MAGNESIUM
  14. ALLOPURINOL [Concomitant]
     Active Substance: ALLOPURINOL
  15. METOLAZONE [Concomitant]
     Active Substance: METOLAZONE
     Dosage: 50 MILLIGRAM, 2/WEEK
     Dates: start: 20241220
  16. METOPROLOL [Concomitant]
     Active Substance: METOPROLOL
  17. OZEMPIC [Concomitant]
     Active Substance: SEMAGLUTIDE
  18. LASIX [Concomitant]
     Active Substance: FUROSEMIDE

REACTIONS (5)
  - Colitis ulcerative [Unknown]
  - Anuria [Not Recovered/Not Resolved]
  - Weight increased [Unknown]
  - Eye swelling [Not Recovered/Not Resolved]
  - Swelling face [Not Recovered/Not Resolved]

NARRATIVE: CASE EVENT DATE: 20190320
